FAERS Safety Report 17657486 (Version 2)
Quarter: 2020Q3

REPORT INFORMATION
  Report Type: Report from Study
  Country: KR (occurrence: KR)
  Receive Date: 20200410
  Receipt Date: 20200423
  Transmission Date: 20201105
  Serious: Yes (Hospitalization)
  Sender: FDA-Public Use
  Company Number: KR-DAIICHI SANKYO (CHINA) HOLDINGS CO., LTD.-DSU-2020-108381

PATIENT

DRUGS (26)
  1. TRASTUZUMAB DERUXTECAN. [Suspect]
     Active Substance: TRASTUZUMAB DERUXTECAN
     Dosage: 4.4 MG/KG, ONCE EVERY 3 WK
     Route: 042
     Dates: start: 20191125, end: 20191125
  2. ALDACTONE [Concomitant]
     Active Substance: SPIRONOLACTONE
     Indication: ASCITES
     Dosage: 25 MG, AS NEEDED
     Route: 048
     Dates: start: 20191125
  3. FEROBA YOU [Concomitant]
     Indication: ANAEMIA PROPHYLAXIS
     Dosage: 256 MG, QD
     Route: 048
     Dates: start: 20190808
  4. SODIUM BICARBONATE. [Concomitant]
     Active Substance: SODIUM BICARBONATE
     Indication: PROPHYLAXIS
     Dosage: 1000 MG, AS NEEDED
     Route: 048
     Dates: start: 20190820
  5. DUPHALAC EASY [Concomitant]
     Active Substance: LACTULOSE
     Indication: CONSTIPATION
     Dosage: 15 ML, AS NEEDED
     Route: 048
     Dates: start: 20190916
  6. GODEX                              /06761501/ [Concomitant]
     Indication: PROPHYLAXIS
     Dosage: 1 CAPSULE, TID
     Route: 048
     Dates: start: 20200113
  7. LYRICA [Concomitant]
     Active Substance: PREGABALIN
     Indication: PERIPHERAL SENSORY NEUROPATHY
     Dosage: 75 MG, AS NEEDED
     Route: 048
     Dates: start: 20200224
  8. MYPOL                              /00020001/ [Concomitant]
     Indication: BACK PAIN
     Dosage: 1CAPSULE, TID
     Route: 048
     Dates: start: 20190719
  9. TRASTUZUMAB DERUXTECAN. [Suspect]
     Active Substance: TRASTUZUMAB DERUXTECAN
     Dosage: 4.4 MG/KG, ONCE EVERY 3 WK
     Route: 042
     Dates: start: 20191014, end: 20191014
  10. TRASTUZUMAB DERUXTECAN. [Suspect]
     Active Substance: TRASTUZUMAB DERUXTECAN
     Dosage: 4.4 MG/KG, ONCE EVERY 3 WK
     Route: 042
     Dates: start: 20191104, end: 20191104
  11. URSA [Concomitant]
     Active Substance: URSODIOL
     Indication: ASPARTATE AMINOTRANSFERASE
     Dosage: 100 MG, TID
     Route: 048
     Dates: start: 20190823
  12. TRASTUZUMAB DERUXTECAN. [Suspect]
     Active Substance: TRASTUZUMAB DERUXTECAN
     Dosage: 4.4 MG/KG, ONCE EVERY 3 WK
     Route: 042
     Dates: start: 20190923, end: 20190923
  13. TRASTUZUMAB DERUXTECAN. [Suspect]
     Active Substance: TRASTUZUMAB DERUXTECAN
     Dosage: 4.4 MG/KG, ONCE EVERY 3 WK
     Route: 042
     Dates: start: 20200203, end: 20200203
  14. TRASTUZUMAB DERUXTECAN. [Suspect]
     Active Substance: TRASTUZUMAB DERUXTECAN
     Dosage: 4.4 MG/KG, ONCE EVERY 3 WK
     Route: 042
     Dates: start: 20200224, end: 20200224
  15. GANAKHAN [Concomitant]
     Indication: DYSPEPSIA
     Dosage: 50 MG, QD
     Route: 048
     Dates: start: 20190902
  16. TRASTUZUMAB DERUXTECAN. [Suspect]
     Active Substance: TRASTUZUMAB DERUXTECAN
     Dosage: 4.4 MG/KG, ONCE EVERY 3 WK
     Route: 042
     Dates: start: 20200113, end: 20200113
  17. NORZYME [Concomitant]
     Indication: DYSPEPSIA
     Dosage: 457.7 UG, QD
     Route: 048
     Dates: start: 20190902, end: 20200305
  18. TANTUM                             /00052302/ [Concomitant]
     Indication: STOMATITIS
     Dosage: 100 MG, AS NEEDED
     Route: 048
     Dates: start: 20190820
  19. TRASTUZUMAB DERUXTECAN. [Suspect]
     Active Substance: TRASTUZUMAB DERUXTECAN
     Dosage: 5.4 MG/KG, ONCE EVERY 3 WK
     Route: 042
     Dates: start: 20190820, end: 20190820
  20. LASIX [Concomitant]
     Active Substance: FUROSEMIDE
     Indication: ASCITES
     Dosage: 40 MG, AS NEEDED
     Route: 048
     Dates: start: 20191125
  21. MEGACE F [Concomitant]
     Indication: DECREASED APPETITE
     Dosage: 5 ML, AS NEEDED
     Route: 048
     Dates: start: 20190826, end: 20200305
  22. TRASTUZUMAB DERUXTECAN. [Suspect]
     Active Substance: TRASTUZUMAB DERUXTECAN
     Dosage: 4.4 MG/KG, ONCE EVERY 3 WK
     Route: 042
     Dates: start: 20191216, end: 20191216
  23. IRCODON [Concomitant]
     Active Substance: OXYCODONE HYDROCHLORIDE
     Indication: BACK PAIN
     Dosage: 5 MG, AS NEEDED
     Route: 048
     Dates: start: 20190719
  24. MAGNESIUM OXIDE. [Concomitant]
     Active Substance: MAGNESIUM OXIDE
     Indication: CONSTIPATION
     Dosage: 250 MG, AS NEEDED
     Route: 048
     Dates: start: 20190916, end: 20200307
  25. SYNTHYROXINE [Concomitant]
     Active Substance: LEVOTHYROXINE SODIUM
     Indication: HYPOTHYROIDISM
     Dosage: 100 UG, QD
     Route: 048
     Dates: start: 20190823
  26. TYLENOL ER [Concomitant]
     Active Substance: ACETAMINOPHEN
     Indication: BACK PAIN
     Dosage: 650 MG, AS NEEDED
     Route: 048
     Dates: start: 20191004

REACTIONS (1)
  - General symptom [Recovering/Resolving]

NARRATIVE: CASE EVENT DATE: 20200306
